FAERS Safety Report 9363665 (Version 2)
Quarter: 2013Q3

REPORT INFORMATION
  Report Type: Spontaneous
  Country: US (occurrence: US)
  Receive Date: 20130624
  Receipt Date: 20130801
  Transmission Date: 20140515
  Serious: No
  Sender: FDA-Public Use
  Company Number: US-PFIZER INC-2013186149

PATIENT
  Age: 9 Year
  Sex: Female
  Weight: 27.21 kg

DRUGS (1)
  1. ADVIL [Suspect]
     Indication: HEADACHE
     Dosage: TWO AND A HALF TABLET, AS NEEDED
     Route: 048

REACTIONS (3)
  - Drug administered to patient of inappropriate age [Unknown]
  - Rash erythematous [Unknown]
  - Rash pruritic [Unknown]
